FAERS Safety Report 5907700-2 (Version None)
Quarter: 2008Q4

REPORT INFORMATION
  Report Type: 
  Country: None (occurrence: None)
  Receive Date: 20081003
  Receipt Date: 20070403
  Transmission Date: 20090506
  Serious: Yes (Death)
  Sender: FDA-Public Use
  Company Number: JP-ROCHE-491732

PATIENT
  Age: 3 Year
  Sex: Male

DRUGS (1)
  1. TAMIFLU [Suspect]
     Route: 048
     Dates: start: 20070314, end: 20070314

REACTIONS (1)
  - CARDIO-RESPIRATORY ARREST [None]
